FAERS Safety Report 9985294 (Version 2)
Quarter: 2014Q1

REPORT INFORMATION
  Report Type: Report from Study
  Country: US (occurrence: US)
  Receive Date: 20140307
  Receipt Date: 20140307
  Transmission Date: 20141002
  Serious: Yes (Death, Hospitalization)
  Sender: FDA-Public Use
  Company Number: US-ACTELION-A-US2012-63894

PATIENT
  Age: 55 Year
  Sex: Female

DRUGS (10)
  1. VELETRI [Suspect]
     Indication: PULMONARY ARTERIAL HYPERTENSION
     Dosage: 29 NG/KG, PER MIN
     Route: 042
     Dates: start: 20120315
  2. VELETRI [Suspect]
     Dosage: 23 NG/KG, PER MIN
     Route: 042
     Dates: start: 20120309
  3. VELETRI [Suspect]
     Dosage: 26 NG/KG, PER MIN
     Route: 042
  4. VELETRI [Suspect]
     Dosage: 31 NG/KG, PER MIN
     Route: 042
     Dates: start: 20120327
  5. OXYGEN [Concomitant]
  6. LOVENOX [Concomitant]
  7. BUMEX [Concomitant]
  8. NIFEDIPINE [Concomitant]
  9. ADCIRCA [Concomitant]
  10. COUMADIN [Concomitant]

REACTIONS (17)
  - Death [Fatal]
  - Oedema [Unknown]
  - Dyspnoea [Unknown]
  - Therapeutic procedure [Unknown]
  - Pericardial effusion [Unknown]
  - Hyperchlorhydria [Unknown]
  - Muscle spasms [Unknown]
  - Drug eruption [Unknown]
  - Oedema peripheral [Unknown]
  - Localised oedema [Unknown]
  - Diarrhoea [Unknown]
  - Pain in jaw [Recovered/Resolved]
  - Flushing [Unknown]
  - Nausea [Unknown]
  - Rash [Unknown]
  - Headache [Recovered/Resolved]
  - Vomiting [Recovered/Resolved]
